FAERS Safety Report 7460489-0 (Version None)
Quarter: 2011Q2

REPORT INFORMATION
  Report Type: 
  Country: None (occurrence: None)
  Receive Date: 20110505
  Receipt Date: 20110502
  Transmission Date: 20111010
  Serious: Yes (Hospitalization)
  Sender: FDA-Public Use
  Company Number: FR-PFIZER INC-2010139063

PATIENT
  Age: 2 Day
  Sex: Female
  Weight: 3.96 kg

DRUGS (2)
  1. ATARAX [Suspect]
     Indication: DEPRESSION
     Dosage: UNK
     Route: 064
     Dates: start: 20100101, end: 20101007
  2. ZOLOFT [Suspect]
     Indication: DEPRESSION
     Dosage: UNK
     Route: 064
     Dates: start: 20100101, end: 20101007

REACTIONS (5)
  - DRUG EXPOSURE DURING PREGNANCY [None]
  - TREMOR [None]
  - BRADYCARDIA NEONATAL [None]
  - DYSKINESIA [None]
  - AGITATION NEONATAL [None]
